FAERS Safety Report 7403325-0 (Version None)
Quarter: 2011Q2

REPORT INFORMATION
  Report Type: 
  Country: None (occurrence: None)
  Receive Date: 20110408
  Receipt Date: 20110404
  Transmission Date: 20111010
  Serious: Yes (Death)
  Sender: FDA-Public Use
  Company Number: US-GILEAD-2011-0034812

PATIENT
  Sex: Female

DRUGS (16)
  1. ADALAT [Concomitant]
  2. LETAIRIS [Suspect]
     Indication: PULMONARY ARTERIAL HYPERTENSION
     Route: 048
     Dates: start: 20100312
  3. PLAVIX [Concomitant]
  4. GLUCOPHAGE [Concomitant]
  5. SINGULAIR [Concomitant]
  6. PREDNISONE [Concomitant]
  7. COREG [Concomitant]
  8. CATAPRES [Concomitant]
  9. ARANESP [Concomitant]
  10. RESPERIDAL [Concomitant]
  11. ALBUTEROL [Concomitant]
  12. IRON [Concomitant]
  13. ZOCOR [Concomitant]
  14. NEURONTIN [Concomitant]
  15. GLUCOTROL [Concomitant]
  16. LEXAPRO [Concomitant]

REACTIONS (1)
  - DEATH [None]
